FAERS Safety Report 6391680-2 (Version None)
Quarter: 2009Q4

REPORT INFORMATION
  Report Type: 
  Country: None (occurrence: None)
  Receive Date: 20091007
  Receipt Date: 20090928
  Transmission Date: 20100525
  Serious: Yes (Hospitalization)
  Sender: FDA-Public Use
  Company Number: CN-KINGPHARMUSA00001-K200901213

PATIENT
  Age: 54 Year
  Sex: Female

DRUGS (1)
  1. TAPAZOLE [Suspect]
     Dosage: UNK

REACTIONS (1)
  - CHOLESTATIC LIVER INJURY [None]
